FAERS Safety Report 23341462 (Version 6)
Quarter: 2025Q4

REPORT INFORMATION
  Report Type: Report from Study
  Country: BR (occurrence: BR)
  Receive Date: 20231227
  Receipt Date: 20251112
  Transmission Date: 20260117
  Serious: Yes (Hospitalization, Other)
  Sender: GLAXOSMITHKLINE
  Company Number: BR-GLAXOSMITHKLINE-BR2023AMR136228

PATIENT
  Age: 69 Year
  Sex: Female

DRUGS (4)
  1. BELIMUMAB [Suspect]
     Active Substance: BELIMUMAB
     Indication: Systemic lupus erythematosus
     Dosage: 240 MG, Q4W
  2. BELIMUMAB [Suspect]
     Active Substance: BELIMUMAB
     Dosage: 120 MG, MO
  3. BELIMUMAB [Suspect]
     Active Substance: BELIMUMAB
     Dosage: UNK (VIAL)
  4. COVID-19 VACCINE [Concomitant]
     Indication: Product used for unknown indication
     Dosage: UNK

REACTIONS (11)
  - Acute kidney injury [Recovered/Resolved]
  - Cutaneous vasculitis [Recovering/Resolving]
  - Pain [Recovering/Resolving]
  - Skin ulcer [Recovering/Resolving]
  - Varicose vein [Not Recovered/Not Resolved]
  - Drug resistance [Unknown]
  - Wound infection [Unknown]
  - Dehydration [Unknown]
  - Conjunctivitis [Unknown]
  - Product dose omission issue [Unknown]
  - Inappropriate schedule of product administration [Unknown]

NARRATIVE: CASE EVENT DATE: 20230828
